FAERS Safety Report 6951811-X (Version None)
Quarter: 2010Q3

REPORT INFORMATION
  Report Type: 
  Country: None (occurrence: None)
  Receive Date: 20100829
  Receipt Date: 20100413
  Transmission Date: 20110219
  Serious: No
  Sender: FDA-Public Use
  Company Number: US-ABBOTT-10P-163-0638504-00

PATIENT
  Sex: Male
  Weight: 64.468 kg

DRUGS (5)
  1. NIASPAN [Suspect]
     Indication: BLOOD FIBRINOGEN INCREASED
     Dosage: AT BEDTIME
     Dates: start: 20090401, end: 20100401
  2. ZOCOR [Concomitant]
     Indication: PRODUCT USED FOR UNKNOWN INDICATION
  3. FISH OIL [Concomitant]
     Indication: PRODUCT USED FOR UNKNOWN INDICATION
  4. ASPIRIN [Concomitant]
     Indication: PRODUCT USED FOR UNKNOWN INDICATION
  5. VINEGAR TABLETS [Concomitant]
     Indication: PRODUCT USED FOR UNKNOWN INDICATION
     Dosage: DAILY

REACTIONS (2)
  - HEADACHE [None]
  - MUSCULOSKELETAL DISCOMFORT [None]
